FAERS Safety Report 20752353 (Version 1)
Quarter: 2022Q2

REPORT INFORMATION
  Report Type: Spontaneous
  Country: US (occurrence: None)
  Receive Date: 20220426
  Receipt Date: 20220426
  Transmission Date: 20220721
  Serious: No
  Sender: FDA-Public Use
  Company Number: US-ROCHE-2091144

PATIENT
  Age: 72 Year
  Sex: Male
  Weight: 93.524 kg

DRUGS (15)
  1. ESBRIET [Suspect]
     Active Substance: PIRFENIDONE
     Indication: Idiopathic pulmonary fibrosis
     Dosage: 1 TABLET THREE TIMES A DAY ;ONGOING: NO
     Route: 048
     Dates: start: 201708
  2. ESBRIET [Suspect]
     Active Substance: PIRFENIDONE
     Dosage: THREE TABLETS THREE TIMES A DAY ;ONGOING: NO
     Route: 048
     Dates: start: 201709, end: 201803
  3. ESBRIET [Suspect]
     Active Substance: PIRFENIDONE
     Route: 048
  4. ESBRIET [Suspect]
     Active Substance: PIRFENIDONE
     Route: 048
     Dates: start: 20211102
  5. CYCLOBENZAPRINE HYDROCHLORIDE [Concomitant]
     Active Substance: CYCLOBENZAPRINE HYDROCHLORIDE
  6. BIFIDOBACTERIUM;LACTOBACILLUS [Concomitant]
  7. FLUTICASONE PROPIONATE [Concomitant]
     Active Substance: FLUTICASONE PROPIONATE
  8. HYDROCHLOROTHIAZIDE\LOSARTAN POTASSIUM [Concomitant]
     Active Substance: HYDROCHLOROTHIAZIDE\LOSARTAN POTASSIUM
  9. PROAIR HFA [Concomitant]
     Active Substance: ALBUTEROL SULFATE
  10. CETIRIZINE HCL [Concomitant]
     Active Substance: CETIRIZINE HYDROCHLORIDE
  11. ATENOLOL [Concomitant]
     Active Substance: ATENOLOL
  12. TAMSULOSIN HYDROCHLORIDE [Concomitant]
     Active Substance: TAMSULOSIN HYDROCHLORIDE
  13. ATORVASTATIN CALCIUM [Concomitant]
     Active Substance: ATORVASTATIN CALCIUM
  14. OMEPRAZOLE [Concomitant]
     Active Substance: OMEPRAZOLE
  15. ZOLPIDEM TARTRATE [Concomitant]
     Active Substance: ZOLPIDEM TARTRATE

REACTIONS (7)
  - Upper respiratory tract infection [Recovering/Resolving]
  - Rash [Recovering/Resolving]
  - Sunburn [Unknown]
  - Rash [Recovered/Resolved]
  - Pruritus [Unknown]
  - Pruritus [Recovered/Resolved]
  - Rash [Recovered/Resolved]

NARRATIVE: CASE EVENT DATE: 20180201
